FAERS Safety Report 19300686 (Version 1)
Quarter: 2021Q2

REPORT INFORMATION
  Report Type: Spontaneous
  Country: CA (occurrence: CA)
  Receive Date: 20210525
  Receipt Date: 20210525
  Transmission Date: 20210717
  Serious: Yes (Death, Other)
  Sender: FDA-Public Use
  Company Number: CA-TEVA-2021-CA-1913745

PATIENT
  Age: 477 Month
  Sex: Female
  Weight: 68 kg

DRUGS (4)
  1. QUETIAPINE FUMARATE. [Suspect]
     Active Substance: QUETIAPINE FUMARATE
     Dosage: 800 MILLIGRAM DAILY;
     Route: 048
  2. RISPERIDONE. [Concomitant]
     Active Substance: RISPERIDONE
     Indication: SUICIDAL IDEATION
     Route: 048
  3. QUETIAPINE FUMARATE. [Suspect]
     Active Substance: QUETIAPINE FUMARATE
     Dosage: 600 MILLIGRAM DAILY;
     Route: 048
  4. QUETIAPINE FUMARATE. [Suspect]
     Active Substance: QUETIAPINE FUMARATE
     Indication: SCHIZOPHRENIA
     Dosage: 50 MILLIGRAM DAILY;
     Route: 048

REACTIONS (12)
  - Neoplasm malignant [Fatal]
  - Neutrophil count decreased [Fatal]
  - Mental disorder [Fatal]
  - Metastatic neoplasm [Fatal]
  - Weight decreased [Fatal]
  - White blood cell count decreased [Fatal]
  - Suicide attempt [Fatal]
  - Monocyte count decreased [Fatal]
  - Immune system disorder [Fatal]
  - White blood cell count increased [Fatal]
  - Insomnia [Fatal]
  - Toxicity to various agents [Fatal]
